FAERS Safety Report 10873038 (Version 1)
Quarter: 2015Q1

REPORT INFORMATION
  Report Type: Spontaneous
  Country: US (occurrence: None)
  Receive Date: 20150223
  Receipt Date: 20150223
  Transmission Date: 20150721
  Serious: No
  Sender: FDA-Public Use
  Company Number: None

PATIENT
  Age: 90 Year
  Sex: Female

DRUGS (1)
  1. MYOBLOC [Suspect]
     Active Substance: RIMABOTULINUMTOXINB
     Indication: NECK PAIN
     Dosage: 7500 UNITS EVERY 3 MONTHS IM
     Route: 030
     Dates: start: 20141230, end: 20150219

REACTIONS (5)
  - Dry mouth [None]
  - Fatigue [None]
  - Visual impairment [None]
  - Visual acuity reduced [None]
  - Post procedural complication [None]

NARRATIVE: CASE EVENT DATE: 201501
